FAERS Safety Report 5534535-5 (Version None)
Quarter: 2007Q4

REPORT INFORMATION
  Report Type: 
  Country: None (occurrence: None)
  Receive Date: 20071205
  Receipt Date: 20071127
  Transmission Date: 20080405
  Serious: Yes (Hospitalization)
  Sender: FDA-Public Use
  Company Number: US-BRISTOL-MYERS SQUIBB COMPANY-13996004

PATIENT
  Age: 52 Year
  Sex: Female
  Weight: 66 kg

DRUGS (5)
  1. CETUXIMAB [Suspect]
     Indication: BREAST CANCER METASTATIC
     Route: 042
     Dates: start: 20071002, end: 20071002
  2. CARBOPLATIN [Suspect]
     Indication: BREAST CANCER METASTATIC
     Route: 042
     Dates: start: 20071002, end: 20071002
  3. PACLITAXEL [Suspect]
  4. GEMCITABINE [Suspect]
  5. VICODIN [Concomitant]

REACTIONS (2)
  - FEBRILE NEUTROPENIA [None]
  - FOLLICULITIS [None]
